FAERS Safety Report 5221152-X (Version None)
Quarter: 2007Q1

REPORT INFORMATION
  Report Type: 
  Country: None (occurrence: None)
  Receive Date: 20070126
  Receipt Date: 20070115
  Transmission Date: 20070707
  Serious: Yes (Hospitalization)
  Sender: FDA-Public Use
  Company Number: CZ-ROCHE-478327

PATIENT
  Age: 54 Year
  Sex: Female

DRUGS (3)
  1. DACLIZUMAB [Suspect]
     Indication: LIVER TRANSPLANT
     Dosage: DAILY DOSE REPORTED AS 75 MG, UNKNOWN/DAY.
     Route: 042
  2. FK506 [Suspect]
     Indication: LIVER TRANSPLANT
     Dosage: DAILY DOSES REPORTED AS 10 MG, UNKNOWN/ DAY.
     Route: 048
     Dates: start: 20061215
  3. FK506 [Suspect]
     Dosage: DAILY DOSE REPORTED AS 4 MG, UNKNOWN /DAY.
     Route: 048

REACTIONS (2)
  - BILIARY TRACT DISORDER [None]
  - HEPATIC ENZYME INCREASED [None]
